FAERS Safety Report 6359408-X (Version None)
Quarter: 2009Q3

REPORT INFORMATION
  Report Type: 
  Country: None (occurrence: None)
  Receive Date: 20090917
  Receipt Date: 20090908
  Transmission Date: 20100115
  Serious: Yes (Death)
  Sender: FDA-Public Use
  Company Number: US-JNJFOC-20090707817

PATIENT
  Sex: Female

DRUGS (3)
  1. REMICADE [Suspect]
     Route: 042
     Dates: start: 20040419, end: 20040601
  2. REMICADE [Suspect]
     Route: 042
     Dates: start: 20040419, end: 20040601
  3. REMICADE [Suspect]
     Indication: RHEUMATOID ARTHRITIS
     Route: 042
     Dates: start: 20040419, end: 20040601

REACTIONS (1)
  - NON-SMALL CELL LUNG CANCER [None]
